FAERS Safety Report 13442259 (Version 1)
Quarter: 2017Q2

REPORT INFORMATION
  Report Type: Spontaneous
  Country: US (occurrence: US)
  Receive Date: 20170413
  Receipt Date: 20170413
  Transmission Date: 20170830
  Serious: Yes (Hospitalization, Disabling, Other)
  Sender: FDA-Public Use
  Company Number: None

PATIENT
  Age: 52 Year
  Sex: Female
  Weight: 142.2 kg

DRUGS (12)
  1. LOVASTATIN. [Suspect]
     Active Substance: LOVASTATIN
     Indication: BLOOD CHOLESTEROL INCREASED
     Route: 048
  2. IMITREX [Concomitant]
     Active Substance: SUMATRIPTAN SUCCINATE
  3. VALIUM [Concomitant]
     Active Substance: DIAZEPAM
  4. CO-Q10 [Concomitant]
  5. VERAPAMIL [Concomitant]
     Active Substance: VERAPAMIL HYDROCHLORIDE
  6. VITAMIN D3 [Concomitant]
     Active Substance: CHOLECALCIFEROL
  7. PREDNISONE. [Concomitant]
     Active Substance: PREDNISONE
  8. TYL#3 [Concomitant]
  9. VITAMIN C [Concomitant]
     Active Substance: ASCORBIC ACID
  10. ASA [Concomitant]
     Active Substance: ASPIRIN
  11. LASIX [Concomitant]
     Active Substance: FUROSEMIDE
  12. POTTASIUM CHLORIDE [Concomitant]
     Active Substance: POTASSIUM CHLORIDE

REACTIONS (4)
  - Pain in extremity [None]
  - Quality of life decreased [None]
  - Pain [None]
  - Immobile [None]

NARRATIVE: CASE EVENT DATE: 20141231
